FAERS Safety Report 10572095 (Version 2)
Quarter: 2014Q4

REPORT INFORMATION
  Report Type: Spontaneous
  Country: BE (occurrence: BE)
  Receive Date: 20141107
  Receipt Date: 20141107
  Transmission Date: 20150529
  Serious: Yes (Death, Hospitalization, Other)
  Sender: FDA-Public Use
  Company Number: BE-GLAXOSMITHKLINE-B1032285A

PATIENT
  Age: 74 Year
  Sex: Male
  Weight: 55.6 kg

DRUGS (10)
  1. BIOGLUCOSAMINE [Concomitant]
     Indication: ARTHROPATHY
     Route: 048
  2. VOTRIENT [Suspect]
     Active Substance: PAZOPANIB HYDROCHLORIDE
     Indication: RENAL CELL CARCINOMA
     Dosage: 800 MG, 1D
     Route: 065
     Dates: start: 20101213, end: 20140904
  3. NOVONORM [Concomitant]
     Active Substance: REPAGLINIDE
     Indication: DIABETES MELLITUS
     Route: 048
  4. ZOPICLONE [Concomitant]
     Active Substance: ZOPICLONE
     Indication: SLEEP DISORDER
     Dosage: 1 DF, UNK
     Route: 048
  5. ALDACTONE (ESPIRONOLACTONA) [Concomitant]
     Indication: DIURETIC THERAPY
     Dosage: 50 MG, UNK
     Route: 048
  6. DAFLON (DIOSMIN) [Concomitant]
     Active Substance: DIOSMIN
     Indication: CARDIOVASCULAR DISORDER
     Dosage: UNK
     Route: 048
  7. ALLOPURINOL. [Concomitant]
     Active Substance: ALLOPURINOL
     Indication: HYPERURICAEMIA
     Route: 048
  8. LIPITOR [Concomitant]
     Active Substance: ATORVASTATIN CALCIUM
     Indication: BLOOD CHOLESTEROL
     Dosage: 20 MG, 1D
     Route: 048
  9. EMCONCOR (BISOPROLOL) [Concomitant]
     Indication: CARDIAC DISORDER
     Dosage: 10 MG, UNK
     Route: 048
  10. PLAVIX [Concomitant]
     Active Substance: CLOPIDOGREL BISULFATE
     Indication: CARDIAC DISORDER
     Dosage: 75 MG, UNK
     Route: 048

REACTIONS (11)
  - Jaundice [Unknown]
  - Nausea [Unknown]
  - Renal failure [Not Recovered/Not Resolved]
  - Confusional state [Unknown]
  - Pallor [Unknown]
  - Pyrexia [Unknown]
  - Hepatic failure [Not Recovered/Not Resolved]
  - Depressed level of consciousness [Unknown]
  - Decreased appetite [Unknown]
  - Hepatotoxicity [Fatal]
  - Sepsis [Not Recovered/Not Resolved]

NARRATIVE: CASE EVENT DATE: 20140904
